FAERS Safety Report 25864186 (Version 1)
Quarter: 2025Q3

REPORT INFORMATION
  Report Type: Report from Study
  Country: CN (occurrence: CN)
  Receive Date: 20250930
  Receipt Date: 20250930
  Transmission Date: 20251020
  Serious: Yes (Hospitalization, Other)
  Sender: TAKEDA
  Company Number: CN-TAKEDA-2025TUS083594

PATIENT
  Age: 12 Year
  Sex: Male

DRUGS (1)
  1. ADVATE [Suspect]
     Active Substance: ANTIHEMOPHILIC FACTOR, HUMAN RECOMBINANT
     Indication: Factor VIII deficiency
     Dosage: 500 INTERNATIONAL UNIT, QD

REACTIONS (5)
  - Arthropathy [Unknown]
  - Peripheral swelling [Unknown]
  - Joint swelling [Unknown]
  - Haemarthrosis [Recovered/Resolved with Sequelae]
  - Inability to afford medication [Unknown]
